FAERS Safety Report 25707296 (Version 1)
Quarter: 2025Q3

REPORT INFORMATION
  Report Type: Spontaneous
  Country: US (occurrence: US)
  Receive Date: 20250820
  Receipt Date: 20250820
  Transmission Date: 20251020
  Serious: No
  Sender: Alpha Cognition
  Company Number: US-ALPHA COGNITION-2025-ZUN-00014

PATIENT

DRUGS (2)
  1. ZUNVEYL [Suspect]
     Active Substance: GALANTAMINE BENZOATE
     Indication: Dementia
     Route: 065
     Dates: start: 20250602, end: 20250702
  2. ZUNVEYL [Suspect]
     Active Substance: GALANTAMINE BENZOATE
     Route: 065
     Dates: start: 20250703, end: 20250705

REACTIONS (4)
  - Cognitive disorder [Recovered/Resolved]
  - Gait disturbance [Recovered/Resolved]
  - Sedation [Recovered/Resolved]
  - Drooling [Recovered/Resolved]

NARRATIVE: CASE EVENT DATE: 20250701
